FAERS Safety Report 8784880 (Version 1)
Quarter: 2012Q4

REPORT INFORMATION
  Report Type: 
  Country: US (occurrence: US)
  Receive Date: 20120914
  Receipt Date: 20120914
  Transmission Date: 20130627
  Serious: Yes (Other)
  Sender: FDA-Public Use
  Company Number: US-ASTRAZENECA-2012SE70099

PATIENT
  Age: 73 Year
  Sex: Male

DRUGS (1)
  1. TOPROL XL [Suspect]
     Route: 048

REACTIONS (4)
  - Cataract [Unknown]
  - Eye degenerative disorder [Unknown]
  - Visual impairment [Unknown]
  - Visual impairment [Unknown]
